FAERS Safety Report 10501082 (Version 1)
Quarter: 2014Q4

REPORT INFORMATION
  Report Type: Spontaneous
  Country: US (occurrence: None)
  Receive Date: 20141003
  Receipt Date: 20141003
  Transmission Date: 20150528
  Serious: No
  Sender: FDA-Public Use
  Company Number: None

PATIENT
  Age: 65 Year
  Sex: Female
  Weight: 81.65 kg

DRUGS (1)
  1. LEVOFLOXACIN. [Suspect]
     Active Substance: LEVOFLOXACIN
     Indication: PNEUMONIA
     Dosage: 1 PILL A DAY?ONCE DAILY?TAKEN BY MOUTH
     Route: 048
     Dates: start: 20140521, end: 20140531

REACTIONS (7)
  - Candida infection [None]
  - Liver disorder [None]
  - Nerve injury [None]
  - Pain [None]
  - Oral discomfort [None]
  - Atrial fibrillation [None]
  - Oral disorder [None]

NARRATIVE: CASE EVENT DATE: 20141002
